FAERS Safety Report 13458862 (Version 1)
Quarter: 2017Q2

REPORT INFORMATION
  Report Type: Spontaneous
  Country: IT (occurrence: IT)
  Receive Date: 20170419
  Receipt Date: 20170419
  Transmission Date: 20170830
  Serious: Yes (Other)
  Sender: FDA-Public Use
  Company Number: IT-ENDO PHARMACEUTICALS INC-2017-002215

PATIENT
  Sex: Female

DRUGS (1)
  1. FROVA [Suspect]
     Active Substance: FROVATRIPTAN SUCCINATE
     Indication: MIGRAINE
     Dosage: 2.5 MG, DAILY
     Route: 048
     Dates: start: 2016, end: 2016

REACTIONS (2)
  - Abortion spontaneous [Recovered/Resolved]
  - Exposure during pregnancy [Recovered/Resolved]

NARRATIVE: CASE EVENT DATE: 2016
